FAERS Safety Report 11783461 (Version 4)
Quarter: 2016Q1

REPORT INFORMATION
  Report Type: Report from Study
  Country: US (occurrence: US)
  Receive Date: 20151127
  Receipt Date: 20160113
  Transmission Date: 20160525
  Serious: Yes (Other)
  Sender: FDA-Public Use
  Company Number: US-AMGEN-USASL2015124699

PATIENT
  Age: 46 Year
  Sex: Female

DRUGS (1)
  1. ENBREL [Suspect]
     Active Substance: ETANERCEPT
     Indication: RHEUMATOID ARTHRITIS
     Dosage: 50 MG, QWK
     Route: 065
     Dates: start: 20151022

REACTIONS (8)
  - Precancerous skin lesion [Unknown]
  - Drug effect incomplete [Unknown]
  - Nasopharyngitis [Unknown]
  - Ovarian cyst [Unknown]
  - Sinusitis [Unknown]
  - Chills [Unknown]
  - Suicidal ideation [Unknown]
  - Breast mass [Unknown]

NARRATIVE: CASE EVENT DATE: 2015
